FAERS Safety Report 9781213 (Version 2)
Quarter: 2016Q2

REPORT INFORMATION
  Report Type: Spontaneous
  Country: US (occurrence: US)
  Receive Date: 20131224
  Receipt Date: 20160627
  Transmission Date: 20160815
  Serious: Yes (Death)
  Sender: FDA-Public Use
  Company Number: US-ROCHE-1318776

PATIENT
  Age: 51 Year
  Sex: Male

DRUGS (3)
  1. RAMIPRIL. [Concomitant]
     Active Substance: RAMIPRIL
  2. ERIVEDGE [Suspect]
     Active Substance: VISMODEGIB
     Indication: BASAL CELL CARCINOMA
     Dosage: BEEN ON IT FOR MONTHS, D/C
     Route: 065
     Dates: start: 20130122, end: 20130802
  3. ATORVASTATIN [Concomitant]
     Active Substance: ATORVASTATIN

REACTIONS (5)
  - Death [Fatal]
  - Myocardial infarction [Fatal]
  - Muscle spasms [Unknown]
  - Alopecia [Unknown]
  - Arteriosclerosis [Fatal]

NARRATIVE: CASE EVENT DATE: 20130812
